FAERS Safety Report 8490321-8 (Version None)
Quarter: 2012Q3

REPORT INFORMATION
  Report Type: 
  Country: None (occurrence: None)
  Receive Date: 20120705
  Receipt Date: 20120625
  Transmission Date: 20120928
  Serious: Yes (Hospitalization)
  Sender: FDA-Public Use
  Company Number: JP-BAXTER-2012BAX006772

PATIENT
  Sex: Male

DRUGS (1)
  1. DIANEAL PD-2 W/ DEXTROSE 4.25% [Suspect]
     Indication: DIABETIC NEPHROPATHY
     Route: 033

REACTIONS (1)
  - CEREBRAL INFARCTION [None]
